FAERS Safety Report 12457652 (Version 2)
Quarter: 2017Q2

REPORT INFORMATION
  Report Type: Spontaneous
  Country: SE (occurrence: SE)
  Receive Date: 20160610
  Receipt Date: 20170405
  Transmission Date: 20170830
  Serious: Yes (Life-Threatening, Other)
  Sender: FDA-Public Use
  Company Number: SE-ASTRAZENECA-2016SE59891

PATIENT
  Age: 77 Year
  Sex: Male

DRUGS (5)
  1. CRESTOR [Suspect]
     Active Substance: ROSUVASTATIN CALCIUM
     Route: 048
     Dates: start: 20160407, end: 20160520
  2. TROMBYL [Concomitant]
     Active Substance: ASPIRIN
  3. LOSARTAN. [Concomitant]
     Active Substance: LOSARTAN
  4. ATORVASTATIN [Suspect]
     Active Substance: ATORVASTATIN
     Route: 065
     Dates: start: 20160308, end: 20160406
  5. OMEPRAZOLE. [Concomitant]
     Active Substance: OMEPRAZOLE

REACTIONS (11)
  - Malaise [Unknown]
  - Hypergammaglobulinaemia benign monoclonal [Unknown]
  - Myalgia [Unknown]
  - Memory impairment [Unknown]
  - Pyrexia [Unknown]
  - Chills [Unknown]
  - Plasma cell myeloma [Not Recovered/Not Resolved]
  - Arthralgia [Unknown]
  - Disturbance in attention [Unknown]
  - Suicidal ideation [Unknown]
  - Vasculitis [Unknown]

NARRATIVE: CASE EVENT DATE: 2016
